FAERS Safety Report 17827004 (Version 1)
Quarter: 2020Q2

REPORT INFORMATION
  Report Type: Spontaneous
  Country: FR (occurrence: FR)
  Receive Date: 20200526
  Receipt Date: 20200526
  Transmission Date: 20200714
  Serious: Yes (Life-Threatening)
  Sender: FDA-Public Use
  Company Number: NVSC2020FR143547

PATIENT
  Age: 81 Year
  Sex: Male
  Weight: 74 kg

DRUGS (3)
  1. OFLOXACIN. [Suspect]
     Active Substance: OFLOXACIN
     Indication: STAPHYLOCOCCAL BACTERAEMIA
     Dosage: UNK (SP?CIALIT?, POSOLOGIE ET VOIE D^ADMINISTRATIONS NON CONNUES)
     Route: 065
     Dates: start: 20200205, end: 20200216
  2. CEFTRIAXONE SODIUM. [Suspect]
     Active Substance: CEFTRIAXONE SODIUM
     Indication: STAPHYLOCOCCAL BACTERAEMIA
     Dosage: UNK (SP?CIALIT?, POSOLOGIE ET VOIE D^ADMINISTRATIONS NON CONNUES)
     Route: 065
     Dates: start: 20200205, end: 20200216
  3. AUGMENTIN [Suspect]
     Active Substance: AMOXICILLIN\CLAVULANATE POTASSIUM
     Indication: STAPHYLOCOCCAL BACTERAEMIA
     Dosage: UNK
     Route: 065
     Dates: start: 20200204, end: 20200205

REACTIONS (2)
  - Acute kidney injury [Not Recovered/Not Resolved]
  - Hypersensitivity vasculitis [Not Recovered/Not Resolved]

NARRATIVE: CASE EVENT DATE: 20200219
